FAERS Safety Report 9370690 (Version 2)
Quarter: 2013Q3

REPORT INFORMATION
  Report Type: Spontaneous
  Country: US (occurrence: US)
  Receive Date: 20130626
  Receipt Date: 20130715
  Transmission Date: 20140515
  Serious: Yes (Death)
  Sender: FDA-Public Use
  Company Number: US-GILEAD-2013-0077688

PATIENT
  Sex: Female

DRUGS (6)
  1. LETAIRIS [Suspect]
     Indication: PULMONARY HYPERTENSION
     Dosage: 5 MG, UNK
     Route: 048
     Dates: start: 20130225
  2. LETAIRIS [Suspect]
     Indication: SCLERODERMA
  3. AMBIEN [Concomitant]
  4. CELEXA                             /00582602/ [Concomitant]
  5. REMODULIN [Concomitant]
  6. PROMETHAZINE [Concomitant]

REACTIONS (3)
  - Pulmonary hypertension [Fatal]
  - Scleroderma [Fatal]
  - Cardiopulmonary failure [Fatal]
